FAERS Safety Report 5017129-X (Version None)
Quarter: 2006Q2

REPORT INFORMATION
  Report Type: 
  Country: None (occurrence: None)
  Receive Date: 20060526
  Receipt Date: 20060518
  Transmission Date: 20061013
  Serious: Yes (Other)
  Sender: FDA-Public Use
  Company Number: 007471

PATIENT
  Age: 80 Year
  Sex: Female
  Weight: 73 kg

DRUGS (3)
  1. OXYCODONE + ACETAMINOPHEN (OXYCODONE, ACETAMINOPHEN) CAPSULE, 5/500MG [Suspect]
     Indication: ARTHRALGIA
     Dosage: 1 CAPS., Q6HR, ORAL
     Route: 048
     Dates: start: 20040714
  2. SYNTHROID [Concomitant]
  3. INDERAL [Concomitant]

REACTIONS (3)
  - ALOPECIA [None]
  - ANAL DISCOMFORT [None]
  - HYPERPARATHYROIDISM [None]
